FAERS Safety Report 4439257-X (Version None)
Quarter: 2004Q3

REPORT INFORMATION
  Report Type: 
  Country: None (occurrence: None)
  Receive Date: 20040728
  Receipt Date: 20040419
  Transmission Date: 20050211
  Serious: No
  Sender: FDA-Public Use
  Company Number: USA040465311

PATIENT
  Age: 11 Year
  Sex: Male
  Weight: 41 kg

DRUGS (3)
  1. STRATTERA [Suspect]
     Indication: ATTENTION DEFICIT/HYPERACTIVITY DISORDER
     Dosage: 40 MG IN THE EVENING
     Dates: start: 20040401
  2. CONCERTA [Concomitant]
  3. PREDNISONE [Concomitant]

REACTIONS (7)
  - DECREASED APPETITE [None]
  - DISTURBANCE IN ATTENTION [None]
  - DRUG EFFECT DECREASED [None]
  - HYPERHIDROSIS [None]
  - INSOMNIA [None]
  - PRURITUS [None]
  - URTICARIA [None]
